FAERS Safety Report 6882514-8 (Version None)
Quarter: 2010Q3

REPORT INFORMATION
  Report Type: 
  Country: None (occurrence: None)
  Receive Date: 20100707
  Receipt Date: 20091103
  Transmission Date: 20110219
  Serious: Yes (Hospitalization)
  Sender: FDA-Public Use
  Company Number: 2009293375

PATIENT
  Sex: Male
  Weight: 72.6 kg

DRUGS (6)
  1. ACCUPRIL [Suspect]
     Indication: HYPERTENSION
  2. QUINAPRIL HCL [Suspect]
  3. ATENOLOL [Suspect]
  4. LIPITOR [Concomitant]
  5. CLONAZEPAM [Concomitant]
  6. AMBIEN [Concomitant]

REACTIONS (4)
  - BLOOD PRESSURE INADEQUATELY CONTROLLED [None]
  - DIARRHOEA [None]
  - PARAESTHESIA [None]
  - TINNITUS [None]
